FAERS Safety Report 8684113 (Version 4)
Quarter: 2012Q4

REPORT INFORMATION
  Report Type: 
  Country: GR (occurrence: GR)
  Receive Date: 20120726
  Receipt Date: 20121001
  Transmission Date: 20130627
  Serious: No
  Sender: FDA-Public Use
  Company Number: GR-ELI_LILLY_AND_COMPANY-GR201207004131

PATIENT
  Age: 22 Year
  Sex: Female
  Weight: 47 kg

DRUGS (2)
  1. ZYPREXA [Suspect]
     Indication: SCHIZOPHRENIA
     Dosage: 15 mg, qd
     Route: 048
     Dates: start: 20120620
  2. ZYPREXA [Suspect]
     Dosage: 20 mg, UNK
     Dates: start: 20120727

REACTIONS (2)
  - Menorrhagia [Recovered/Resolved]
  - Metrorrhagia [Unknown]
